FAERS Safety Report 24701286 (Version 1)
Quarter: 2024Q4

REPORT INFORMATION
  Report Type: Spontaneous
  Country: AT (occurrence: AT)
  Receive Date: 20241205
  Receipt Date: 20241205
  Transmission Date: 20250115
  Serious: No
  Sender: UCB
  Company Number: AT-UCBSA-2024062513

PATIENT
  Age: 47 Year
  Sex: Male

DRUGS (1)
  1. NEUPRO [Suspect]
     Active Substance: ROTIGOTINE
     Indication: Restless legs syndrome
     Dosage: 2 UNK, UNK
     Route: 062
     Dates: start: 202406

REACTIONS (5)
  - Fatigue [Unknown]
  - Somnolence [Unknown]
  - Poor quality sleep [Unknown]
  - Product adhesion issue [Unknown]
  - Incorrect dose administered [Unknown]
